FAERS Safety Report 8058360-9 (Version None)
Quarter: 2012Q1

REPORT INFORMATION
  Report Type: 
  Country: None (occurrence: None)
  Receive Date: 20120120
  Receipt Date: 20120109
  Transmission Date: 20120608
  Serious: Yes (Hospitalization)
  Sender: FDA-Public Use
  Company Number: US-ELI_LILLY_AND_COMPANY-US201201003367

PATIENT
  Sex: Female

DRUGS (19)
  1. ESGIC-PLUS [Concomitant]
  2. VALIUM [Concomitant]
  3. NASONEX [Concomitant]
  4. PERCOCET [Concomitant]
  5. FLEXERIL [Concomitant]
  6. ALLEGRA [Concomitant]
  7. METFORMIN HCL [Concomitant]
  8. ZESTRIL [Concomitant]
  9. BENTYL [Concomitant]
  10. NEXIUM [Concomitant]
  11. DURAGESIC-100 [Concomitant]
  12. METOPROLOL [Concomitant]
  13. ZANAFLEX [Concomitant]
  14. PROZAC [Suspect]
     Indication: DEPRESSION
  15. BENADRYL [Concomitant]
  16. TYLENOL (CAPLET) [Concomitant]
  17. VYTORIN [Concomitant]
  18. TRIAMTERENE AND HYDROCHLOROTHIAZIDE [Concomitant]
  19. VITAMIN D [Concomitant]

REACTIONS (8)
  - INTENTIONAL DRUG MISUSE [None]
  - ABNORMAL DREAMS [None]
  - ABNORMAL BEHAVIOUR [None]
  - CHEST INJURY [None]
  - PARANOIA [None]
  - FALL [None]
  - HALLUCINATION, AUDITORY [None]
  - DRUG DOSE OMISSION [None]
